FAERS Safety Report 11647911 (Version 1)
Quarter: 2015Q4

REPORT INFORMATION
  Report Type: Spontaneous
  Country: US (occurrence: None)
  Receive Date: 20151020
  Receipt Date: 20151020
  Transmission Date: 20160304
  Serious: Yes (Hospitalization)
  Sender: FDA-Public Use
  Company Number: None

PATIENT
  Age: 78 Year
  Sex: Male
  Weight: 92.7 kg

DRUGS (1)
  1. TOCILIZUMAB [Suspect]
     Active Substance: TOCILIZUMAB
     Indication: RHEUMATOID ARTHRITIS
     Dosage: 360 MG OTHER IV
     Route: 042
     Dates: start: 20150626, end: 20150724

REACTIONS (9)
  - Sneezing [None]
  - Dyspnoea [None]
  - Pyrexia [None]
  - Cough [None]
  - Pneumonia [None]
  - Prostate cancer [None]
  - Wheezing [None]
  - Malaise [None]
  - Chills [None]

NARRATIVE: CASE EVENT DATE: 20150731
